FAERS Safety Report 6793384-0 (Version None)
Quarter: 2010Q2

REPORT INFORMATION
  Report Type: 
  Country: None (occurrence: None)
  Receive Date: 20100624
  Receipt Date: 20100121
  Transmission Date: 20101027
  Serious: Yes (Other)
  Sender: FDA-Public Use
  Company Number: US-MYLANLABS-2010S1001005

PATIENT
  Age: 54 Year
  Sex: Female

DRUGS (14)
  1. CLOZAPINE [Suspect]
     Route: 048
     Dates: end: 20100114
  2. CLOZAPINE [Suspect]
     Route: 048
     Dates: start: 20100115
  3. CLOZAPINE [Suspect]
     Route: 048
     Dates: end: 20100114
  4. CLOZAPINE [Suspect]
     Route: 048
     Dates: start: 20100115
  5. NPH INSULIN [Concomitant]
  6. TRAZODONE HYDROCHLORIDE [Concomitant]
  7. DOCUSATE [Concomitant]
  8. PROTONIX [Concomitant]
  9. METFORMIN HCL [Concomitant]
  10. LITHIUM [Concomitant]
  11. SYNTHROID [Concomitant]
  12. ZOCOR [Concomitant]
  13. LAMICTAL [Concomitant]
  14. ATIVAN [Concomitant]

REACTIONS (1)
  - GRANULOCYTOPENIA [None]
